FAERS Safety Report 19679207 (Version 1)
Quarter: 2021Q3

REPORT INFORMATION
  Report Type: Spontaneous
  Country: CA (occurrence: CA)
  Receive Date: 20210810
  Receipt Date: 20210810
  Transmission Date: 20211014
  Serious: Yes (Death, Hospitalization, Disabling)
  Sender: FDA-Public Use
  Company Number: CA-DRREDDYS-SPO/CAN/21/0138641

PATIENT
  Sex: Male
  Weight: 92 kg

DRUGS (56)
  1. CEFTAROLINE FOSAMIL [Suspect]
     Active Substance: CEFTAROLINE FOSAMIL
     Indication: OSTEOMYELITIS
  2. CUBICIN [Suspect]
     Active Substance: DAPTOMYCIN
     Indication: INTERVERTEBRAL DISCITIS
  3. RIFAMPIN. [Suspect]
     Active Substance: RIFAMPIN
     Indication: SEPSIS
     Route: 065
  4. TIGECYCLINE. [Suspect]
     Active Substance: TIGECYCLINE
     Indication: INADEQUATE DIET
  5. VANCOMYCIN HYDROCHLORIDE. [Suspect]
     Active Substance: VANCOMYCIN HYDROCHLORIDE
     Indication: INTERVERTEBRAL DISCITIS
  6. CEFTAROLINE FOSAMIL [Suspect]
     Active Substance: CEFTAROLINE FOSAMIL
     Indication: BURKHOLDERIA CEPACIA COMPLEX INFECTION
  7. CUBICIN [Suspect]
     Active Substance: DAPTOMYCIN
     Indication: PARASPINAL ABSCESS
  8. LINEZOLID. [Suspect]
     Active Substance: LINEZOLID
     Indication: INTERVERTEBRAL DISCITIS
  9. RIFAMPIN. [Suspect]
     Active Substance: RIFAMPIN
     Indication: OESOPHAGEAL ABSCESS
  10. RIFAMPIN. [Suspect]
     Active Substance: RIFAMPIN
     Indication: INADEQUATE DIET
  11. TIGECYCLINE. [Suspect]
     Active Substance: TIGECYCLINE
     Indication: PARASPINAL ABSCESS
  12. TIGECYCLINE. [Suspect]
     Active Substance: TIGECYCLINE
     Indication: INTERVERTEBRAL DISCITIS
  13. TIGECYCLINE. [Suspect]
     Active Substance: TIGECYCLINE
     Indication: BURKHOLDERIA CEPACIA COMPLEX INFECTION
  14. VANCOMYCIN HYDROCHLORIDE. [Suspect]
     Active Substance: VANCOMYCIN HYDROCHLORIDE
     Indication: BURKHOLDERIA CEPACIA COMPLEX INFECTION
  15. DAPTOMYCIN. [Suspect]
     Active Substance: DAPTOMYCIN
     Indication: SEPSIS
     Route: 065
  16. DAPTOMYCIN. [Suspect]
     Active Substance: DAPTOMYCIN
     Indication: INTERVERTEBRAL DISCITIS
  17. CEFTAROLINE FOSAMIL [Suspect]
     Active Substance: CEFTAROLINE FOSAMIL
     Indication: SEPSIS
     Route: 065
  18. CEFTAROLINE FOSAMIL [Suspect]
     Active Substance: CEFTAROLINE FOSAMIL
     Indication: PARASPINAL ABSCESS
  19. CUBICIN [Suspect]
     Active Substance: DAPTOMYCIN
     Indication: OESOPHAGEAL ABSCESS
  20. DOXYCYCLINE HYCLATE. [Suspect]
     Active Substance: DOXYCYCLINE HYCLATE
     Indication: OESOPHAGEAL ABSCESS
  21. DOXYCYCLINE HYCLATE. [Suspect]
     Active Substance: DOXYCYCLINE HYCLATE
     Indication: BURKHOLDERIA CEPACIA COMPLEX INFECTION
  22. LINEZOLID. [Suspect]
     Active Substance: LINEZOLID
     Indication: BURKHOLDERIA CEPACIA COMPLEX INFECTION
  23. TIGECYCLINE. [Suspect]
     Active Substance: TIGECYCLINE
     Indication: OSTEOMYELITIS
  24. DAPTOMYCIN. [Suspect]
     Active Substance: DAPTOMYCIN
     Indication: OESOPHAGEAL ABSCESS
  25. CEFTAROLINE FOSAMIL [Suspect]
     Active Substance: CEFTAROLINE FOSAMIL
     Indication: OESOPHAGEAL ABSCESS
  26. CEFTAROLINE FOSAMIL [Suspect]
     Active Substance: CEFTAROLINE FOSAMIL
     Indication: INTERVERTEBRAL DISCITIS
  27. CEFTAROLINE FOSAMIL [Suspect]
     Active Substance: CEFTAROLINE FOSAMIL
     Indication: INADEQUATE DIET
  28. CUBICIN [Suspect]
     Active Substance: DAPTOMYCIN
     Indication: OSTEOMYELITIS
  29. DOXYCYCLINE HYCLATE. [Suspect]
     Active Substance: DOXYCYCLINE HYCLATE
     Indication: OSTEOMYELITIS
  30. LINEZOLID. [Suspect]
     Active Substance: LINEZOLID
     Indication: INADEQUATE DIET
  31. RIFAMPIN. [Suspect]
     Active Substance: RIFAMPIN
     Indication: BURKHOLDERIA CEPACIA COMPLEX INFECTION
  32. DAPTOMYCIN. [Suspect]
     Active Substance: DAPTOMYCIN
     Indication: OSTEOMYELITIS
  33. CUBICIN [Suspect]
     Active Substance: DAPTOMYCIN
     Indication: SEPSIS
     Route: 065
  34. DOXYCYCLINE HYCLATE. [Suspect]
     Active Substance: DOXYCYCLINE HYCLATE
     Indication: INADEQUATE DIET
  35. LINEZOLID. [Suspect]
     Active Substance: LINEZOLID
     Indication: PARASPINAL ABSCESS
  36. RIFAMPIN. [Suspect]
     Active Substance: RIFAMPIN
     Indication: INTERVERTEBRAL DISCITIS
  37. VANCOMYCIN HYDROCHLORIDE. [Suspect]
     Active Substance: VANCOMYCIN HYDROCHLORIDE
     Indication: OESOPHAGEAL ABSCESS
  38. VANCOMYCIN HYDROCHLORIDE. [Suspect]
     Active Substance: VANCOMYCIN HYDROCHLORIDE
     Indication: INADEQUATE DIET
  39. DAPTOMYCIN. [Suspect]
     Active Substance: DAPTOMYCIN
     Indication: INADEQUATE DIET
  40. LINEZOLID. [Suspect]
     Active Substance: LINEZOLID
     Indication: SEPSIS
     Route: 065
  41. LINEZOLID. [Suspect]
     Active Substance: LINEZOLID
     Indication: OSTEOMYELITIS
  42. RIFAMPIN. [Suspect]
     Active Substance: RIFAMPIN
     Indication: OSTEOMYELITIS
  43. DAPTOMYCIN. [Suspect]
     Active Substance: DAPTOMYCIN
     Indication: PARASPINAL ABSCESS
  44. DAPTOMYCIN. [Suspect]
     Active Substance: DAPTOMYCIN
     Indication: BURKHOLDERIA CEPACIA COMPLEX INFECTION
  45. CUBICIN [Suspect]
     Active Substance: DAPTOMYCIN
     Indication: INADEQUATE DIET
  46. DOXYCYCLINE HYCLATE. [Suspect]
     Active Substance: DOXYCYCLINE HYCLATE
     Indication: INTERVERTEBRAL DISCITIS
  47. VANCOMYCIN HYDROCHLORIDE. [Suspect]
     Active Substance: VANCOMYCIN HYDROCHLORIDE
     Indication: OSTEOMYELITIS
  48. CUBICIN [Suspect]
     Active Substance: DAPTOMYCIN
     Indication: BURKHOLDERIA CEPACIA COMPLEX INFECTION
  49. DOXYCYCLINE HYCLATE. [Suspect]
     Active Substance: DOXYCYCLINE HYCLATE
     Indication: SEPSIS
     Route: 065
  50. DOXYCYCLINE HYCLATE. [Suspect]
     Active Substance: DOXYCYCLINE HYCLATE
     Indication: PARASPINAL ABSCESS
  51. LINEZOLID. [Suspect]
     Active Substance: LINEZOLID
     Indication: OESOPHAGEAL ABSCESS
  52. RIFAMPIN. [Suspect]
     Active Substance: RIFAMPIN
     Indication: PARASPINAL ABSCESS
  53. TIGECYCLINE. [Suspect]
     Active Substance: TIGECYCLINE
     Indication: SEPSIS
     Route: 065
  54. TIGECYCLINE. [Suspect]
     Active Substance: TIGECYCLINE
     Indication: OESOPHAGEAL ABSCESS
  55. VANCOMYCIN HYDROCHLORIDE. [Suspect]
     Active Substance: VANCOMYCIN HYDROCHLORIDE
     Indication: SEPSIS
     Route: 065
  56. VANCOMYCIN HYDROCHLORIDE. [Suspect]
     Active Substance: VANCOMYCIN HYDROCHLORIDE
     Indication: PARASPINAL ABSCESS

REACTIONS (6)
  - Staphylococcal infection [Fatal]
  - General physical health deterioration [Fatal]
  - Transaminases increased [Fatal]
  - Thrombocytopenia [Fatal]
  - Hypophagia [Fatal]
  - Treatment failure [Fatal]
